FAERS Safety Report 8310460-1 (Version None)
Quarter: 2012Q2

REPORT INFORMATION
  Report Type: 
  Country: None (occurrence: None)
  Receive Date: 20120425
  Receipt Date: 20120419
  Transmission Date: 20120825
  Serious: Yes (Other)
  Sender: FDA-Public Use
  Company Number: US-BAYER-2012-038641

PATIENT
  Age: 59 Year
  Sex: Female

DRUGS (3)
  1. BETASERON [Suspect]
     Dosage: 8 MIU, QOD
     Route: 058
     Dates: start: 20120128, end: 20120302
  2. BETASERON [Suspect]
     Dosage: UNK
     Route: 058
     Dates: start: 20110924, end: 20120115
  3. BETASERON [Suspect]
     Indication: RELAPSING-REMITTING MULTIPLE SCLEROSIS
     Dosage: UNK
     Route: 058
     Dates: start: 20100112, end: 20101006

REACTIONS (4)
  - ANGIOEDEMA [None]
  - LETHARGY [None]
  - CRYING [None]
  - DEPRESSED MOOD [None]
